FAERS Safety Report 6923538-1 (Version None)
Quarter: 2010Q3

REPORT INFORMATION
  Report Type: 
  Country: None (occurrence: None)
  Receive Date: 20100813
  Receipt Date: 20100805
  Transmission Date: 20110219
  Serious: Yes (Hospitalization)
  Sender: FDA-Public Use
  Company Number: A0867261A

PATIENT
  Age: 45 Year
  Sex: Female
  Weight: 104.1 kg

DRUGS (1)
  1. AVANDIA [Suspect]
     Dates: start: 19990101, end: 20020101

REACTIONS (5)
  - ASTHENIA [None]
  - BLOOD GLUCOSE INCREASED [None]
  - CARDIAC DISORDER [None]
  - DYSPNOEA [None]
  - PALPITATIONS [None]
